FAERS Safety Report 12071887 (Version 2)
Quarter: 2016Q1

REPORT INFORMATION
  Report Type: Other
  Country: US (occurrence: US)
  Receive Date: 20160212
  Receipt Date: 20160314
  Transmission Date: 20160526
  Serious: Yes (Hospitalization, Other)
  Sender: FDA-Public Use
  Company Number: US-SHIRE-US201601386

PATIENT
  Sex: Female
  Weight: 68.93 kg

DRUGS (4)
  1. LIALDA [Suspect]
     Active Substance: MESALAMINE
     Indication: COLITIS ULCERATIVE
     Dosage: 4.8 G, 1X/DAY:QD
     Route: 048
  2. LIALDA [Suspect]
     Active Substance: MESALAMINE
     Dosage: 2.4 G, 2X/DAY:BID
     Route: 048
     Dates: start: 2016
  3. LIALDA [Suspect]
     Active Substance: MESALAMINE
     Dosage: 2.4 G, 1X/DAY:QD
     Route: 048
     Dates: start: 201412
  4. LIALDA [Suspect]
     Active Substance: MESALAMINE
     Dosage: 2.4 G, 1X/DAY:QD
     Route: 048
     Dates: start: 20160106

REACTIONS (8)
  - Hypokalaemia [Unknown]
  - Malnutrition [Unknown]
  - Colitis ulcerative [Recovered/Resolved]
  - Hypomagnesaemia [Unknown]
  - Inappropriate schedule of drug administration [Unknown]
  - Influenza [Unknown]
  - Clostridium difficile infection [Unknown]
  - Hypocalcaemia [Unknown]

NARRATIVE: CASE EVENT DATE: 2016
